FAERS Safety Report 4892040-3 (Version None)
Quarter: 2006Q1

REPORT INFORMATION
  Report Type: 
  Country: None (occurrence: None)
  Receive Date: 20060126
  Receipt Date: 20051220
  Transmission Date: 20060701
  Serious: Yes (Disabling, Other)
  Sender: FDA-Public Use
  Company Number: PHRM2005FR03344

PATIENT
  Age: 69 Year
  Sex: Male

DRUGS (3)
  1. AREDIA [Suspect]
     Indication: MULTIPLE MYELOMA
     Dosage: 90 MG, QMO
     Route: 042
     Dates: start: 20040916, end: 20050912
  2. CORTANCYL [Suspect]
     Indication: MULTIPLE MYELOMA
     Route: 048
     Dates: start: 20041103, end: 20041107
  3. VELCADE [Concomitant]
     Indication: MULTIPLE MYELOMA
     Dates: start: 20050801

REACTIONS (2)
  - OSTEONECROSIS [None]
  - PELVIC PAIN [None]
